FAERS Safety Report 10214590 (Version 3)
Quarter: 2014Q3

REPORT INFORMATION
  Report Type: Report from Study
  Country: GB (occurrence: GB)
  Receive Date: 20140603
  Receipt Date: 20140829
  Transmission Date: 20150326
  Serious: Yes (Hospitalization, Disabling, Other)
  Sender: FDA-Public Use
  Company Number: GB-GLAXOSMITHKLINE-B0997993A

PATIENT
  Age: 65 Year
  Sex: Female

DRUGS (1)
  1. DABRAFENIB [Suspect]
     Active Substance: DABRAFENIB
     Indication: METASTATIC MALIGNANT MELANOMA
     Dosage: 300MG PER DAY
     Route: 048
     Dates: start: 20130628

REACTIONS (13)
  - Lower respiratory tract infection [Recovered/Resolved]
  - Joint dislocation [Recovered/Resolved]
  - Fatigue [Not Recovered/Not Resolved]
  - Pyrexia [Recovered/Resolved]
  - Seborrhoeic keratosis [Not Recovered/Not Resolved]
  - Arthralgia [Recovering/Resolving]
  - Skin papilloma [Not Recovered/Not Resolved]
  - Dermatitis acneiform [Recovered/Resolved]
  - Alopecia [Recovered/Resolved]
  - Hyperkeratosis [Not Recovered/Not Resolved]
  - Rash pustular [Recovered/Resolved]
  - Nail disorder [Not Recovered/Not Resolved]
  - Neuropathy peripheral [Recovered/Resolved]

NARRATIVE: CASE EVENT DATE: 20130702
